FAERS Safety Report 10308635 (Version 2)
Quarter: 2014Q3

REPORT INFORMATION
  Report Type: Spontaneous
  Country: US (occurrence: US)
  Receive Date: 20140716
  Receipt Date: 20140718
  Transmission Date: 20150326
  Serious: Yes (Hospitalization, Other)
  Sender: FDA-Public Use
  Company Number: US-009507513-1407USA006887

PATIENT
  Age: 55 Year
  Sex: Female
  Weight: 145.13 kg

DRUGS (1)
  1. JANUMET [Suspect]
     Active Substance: METFORMIN HYDROCHLORIDE\SITAGLIPTIN PHOSPHATE
     Indication: TYPE 2 DIABETES MELLITUS
     Dosage: STRENGTH : 50-1000 (UNITS NOT REPORTED), 1 DF, BID
     Route: 048
     Dates: start: 20090415, end: 20130312

REACTIONS (3)
  - Pancreatitis [Unknown]
  - Cholecystectomy [Unknown]
  - Cellulitis [Unknown]

NARRATIVE: CASE EVENT DATE: 20111127
